FAERS Safety Report 5575128-3 (Version None)
Quarter: 2007Q4

REPORT INFORMATION
  Report Type: 
  Country: None (occurrence: None)
  Receive Date: 20071227
  Receipt Date: 20071217
  Transmission Date: 20080405
  Serious: Yes (Hospitalization, Disabling, Other)
  Sender: FDA-Public Use
  Company Number: FR-PFIZER INC-2007106347

PATIENT
  Age: 74 Year
  Sex: Female

DRUGS (1)
  1. TAHOR [Suspect]
     Indication: CEREBROVASCULAR ACCIDENT

REACTIONS (4)
  - BLOOD CREATINE PHOSPHOKINASE INCREASED [None]
  - LIVER DISORDER [None]
  - RHABDOMYOLYSIS [None]
  - TRANSAMINASES INCREASED [None]
